FAERS Safety Report 6467704-0 (Version None)
Quarter: 2009Q4

REPORT INFORMATION
  Report Type: 
  Country: None (occurrence: None)
  Receive Date: 20091202
  Receipt Date: 20091124
  Transmission Date: 20100525
  Serious: Yes (Disabling)
  Sender: FDA-Public Use
  Company Number: PHHO2009NZ14083

PATIENT

DRUGS (3)
  1. TASIGNA [Suspect]
     Indication: HYPEREOSINOPHILIC SYNDROME
     Dosage: 400 MG, BID
     Route: 048
     Dates: start: 20090311, end: 20090401
  2. TASIGNA [Suspect]
     Dosage: 200MG BID
     Route: 048
     Dates: start: 20090401
  3. TASIGNA [Suspect]
     Dosage: 200MG/DAY
     Route: 048
     Dates: start: 20090812

REACTIONS (4)
  - DISTURBANCE IN ATTENTION [None]
  - FLUID RETENTION [None]
  - SOMNOLENCE [None]
  - WEIGHT INCREASED [None]
